FAERS Safety Report 9711575 (Version 1)
Quarter: 2013Q4

REPORT INFORMATION
  Report Type: Spontaneous
  Country: US (occurrence: None)
  Receive Date: 20131125
  Receipt Date: 20131125
  Transmission Date: 20140711
  Serious: No
  Sender: FDA-Public Use
  Company Number: None

PATIENT
  Age: 47 Year
  Sex: Female
  Weight: 77.11 kg

DRUGS (1)
  1. MACROBID 100 MG GENERIC [Suspect]
     Indication: URINARY TRACT INFECTION
     Dosage: 1 CAPSULE TWICE DAILY TAKEN BY MOUTH
     Route: 048
     Dates: start: 20131115, end: 20131121

REACTIONS (6)
  - Rash [None]
  - Chest discomfort [None]
  - Dyspnoea [None]
  - Pyrexia [None]
  - Headache [None]
  - Nausea [None]
